FAERS Safety Report 16955482 (Version 3)
Quarter: 2020Q1

REPORT INFORMATION
  Report Type: Spontaneous
  Country: ES (occurrence: ES)
  Receive Date: 20191024
  Receipt Date: 20200110
  Transmission Date: 20200409
  Serious: Yes (Other)
  Sender: FDA-Public Use
  Company Number: ES-TEVA-2019-ES-1125845

PATIENT
  Age: 69 Year
  Sex: Male
  Weight: 85 kg

DRUGS (10)
  1. RECTOGESIC (NITROGLICERINA T?PICA ANAL) [Interacting]
     Active Substance: NITROGLYCERIN
     Indication: ANAL SPHINCTER HYPERTONIA
     Dosage: 1 APP EVERY 12 HOURS 1 DOSAGE FORMS
     Route: 054
     Dates: start: 20190916, end: 20190917
  2. METAMIZOL 2G/5ML AMP [Concomitant]
     Route: 042
  3. ENALAPRIL 20 MG COMP [Interacting]
     Active Substance: ENALAPRIL
     Dosage: 1 CADA 24 HORAS. 1-0-0
     Route: 048
     Dates: start: 201906, end: 20190911
  4. ENOXAPARINA 40 MG JER PRE BC (INHIXA) [Concomitant]
     Route: 058
  5. PARAFINA LIQUIDA [Concomitant]
     Route: 048
  6. OMEPRAZOL 20 MG CAPS [Concomitant]
     Route: 048
  7. ENALAPRIL 20 MG COMP [Suspect]
     Active Substance: ENALAPRIL
     Indication: HYPERTENSION
     Dosage: 1 TABLET (IF TA GREATER THAN 150/95) ORAL EVERY 24 HOURS (9H)
     Route: 048
     Dates: start: 20190912
  8. PARACETAMOL 1G/100ML INY [Concomitant]
     Route: 042
  9. DIAZEPAM 5MG COMP [Concomitant]
     Dosage: 5 MG ORAL BEFORE BEDTIME (23H)
     Route: 048
  10. IBUPROFENO 600 MG COMP [Concomitant]
     Route: 048

REACTIONS (3)
  - Hypotension [Recovering/Resolving]
  - Drug interaction [Unknown]
  - Fall [Recovering/Resolving]

NARRATIVE: CASE EVENT DATE: 20190917
